FAERS Safety Report 9337310 (Version 8)
Quarter: 2015Q3

REPORT INFORMATION
  Report Type: Spontaneous
  Country: US (occurrence: US)
  Receive Date: 20130607
  Receipt Date: 20150702
  Transmission Date: 20151125
  Serious: Yes (Hospitalization, Other)
  Sender: FDA-Public Use
  Company Number: US-009507513-1305USA017835

PATIENT
  Sex: Female

DRUGS (5)
  1. PREDNISONE. [Concomitant]
     Active Substance: PREDNISONE
     Indication: ERYTHEMA NODOSUM
  2. PREDNISONE. [Concomitant]
     Active Substance: PREDNISONE
     Indication: SARCOIDOSIS
     Dosage: 3-5 MG, QD
     Route: 048
     Dates: start: 1980
  3. ALENDRONATE SODIUM. [Suspect]
     Active Substance: ALENDRONATE SODIUM
     Indication: OSTEOPOROSIS
     Dosage: 70 MG, UNK
     Route: 048
     Dates: start: 2008, end: 2011
  4. CALCIUM (UNSPECIFIED) (+) VITAMIN D (UNSPECIFIED) [Concomitant]
     Active Substance: CALCIUM CARBONATE\VITAMIN D
     Dosage: 1200-1500 MG, DAILY
     Route: 048
     Dates: start: 1998
  5. FOSAMAX [Suspect]
     Active Substance: ALENDRONATE SODIUM
     Indication: OSTEOPOROSIS
     Dosage: 70 MG, QW
     Route: 048
     Dates: start: 2000, end: 20110823

REACTIONS (46)
  - Sjogren^s syndrome [Unknown]
  - Hysterectomy [Unknown]
  - Joint instability [Unknown]
  - Musculoskeletal pain [Unknown]
  - Joint swelling [Unknown]
  - Asthenia [Unknown]
  - Hypertension [Unknown]
  - Chronic kidney disease [Not Recovered/Not Resolved]
  - Osteoarthritis [Unknown]
  - Premature menopause [Unknown]
  - Depression [Unknown]
  - Dry skin [Unknown]
  - Oestrogen deficiency [Unknown]
  - Low turnover osteopathy [Unknown]
  - Dyspepsia [Unknown]
  - Bursitis [Unknown]
  - Enthesopathy [Unknown]
  - Dysuria [Unknown]
  - Pruritus [Unknown]
  - Femur fracture [Recovered/Resolved]
  - Raynaud^s phenomenon [Unknown]
  - Joint crepitation [Unknown]
  - Back pain [Not Recovered/Not Resolved]
  - Arthralgia [Unknown]
  - Arthralgia [Unknown]
  - Joint range of motion decreased [Unknown]
  - Rash [Unknown]
  - Femur fracture [Recovering/Resolving]
  - Bone lesion [Unknown]
  - Myalgia [Unknown]
  - Constipation [Unknown]
  - Muscular weakness [Unknown]
  - Rash [Unknown]
  - Intramedullary rod insertion [Recovered/Resolved]
  - Thrombocytopenia [Unknown]
  - Back pain [Unknown]
  - Pollakiuria [Unknown]
  - Metastasis [Unknown]
  - Adrenal insufficiency [Not Recovered/Not Resolved]
  - Sciatica [Unknown]
  - Headache [Unknown]
  - Haemorrhagic anaemia [Unknown]
  - Insomnia [Unknown]
  - Hypercalcaemia [Unknown]
  - Joint stiffness [Unknown]
  - Anaemia [Unknown]

NARRATIVE: CASE EVENT DATE: 20070508
